FAERS Safety Report 6314627-3 (Version None)
Quarter: 2009Q3

REPORT INFORMATION
  Report Type: 
  Country: None (occurrence: None)
  Receive Date: 20090819
  Receipt Date: 20090528
  Transmission Date: 20100115
  Serious: No
  Sender: FDA-Public Use
  Company Number: US-BAYER-200922157NA

PATIENT
  Sex: Female
  Weight: 54 kg

DRUGS (1)
  1. CLIMARA [Suspect]
     Indication: DRUG USE FOR UNKNOWN INDICATION
     Dosage: CONTINUOUS DELIVERY FOR ONCE WEEKLY APPLICATION
     Route: 062
     Dates: end: 20090301

REACTIONS (2)
  - APPLICATION SITE PAPULES [None]
  - APPLICATION SITE RASH [None]
